FAERS Safety Report 6730787-4 (Version None)
Quarter: 2010Q2

REPORT INFORMATION
  Report Type: 
  Country: None (occurrence: None)
  Receive Date: 20100518
  Receipt Date: 20100512
  Transmission Date: 20101027
  Serious: Yes (Hospitalization)
  Sender: FDA-Public Use
  Company Number: CH-BRISTOL-MYERS SQUIBB COMPANY-15101637

PATIENT
  Age: 1 Day
  Sex: Female
  Weight: 2 kg

DRUGS (5)
  1. REYATAZ [Suspect]
     Route: 064
     Dates: end: 20090422
  2. KIVEXA [Suspect]
     Route: 064
  3. NORVIR [Suspect]
     Route: 064
  4. COMBIVIR [Suspect]
     Route: 064
     Dates: start: 20090422
  5. KALETRA [Suspect]
     Route: 064
     Dates: start: 20090422

REACTIONS (2)
  - MICROCEPHALY [None]
  - PREMATURE BABY [None]
